FAERS Safety Report 16471450 (Version 3)
Quarter: 2019Q3

REPORT INFORMATION
  Report Type: Spontaneous
  Country: FR (occurrence: FR)
  Receive Date: 20190624
  Receipt Date: 20190726
  Transmission Date: 20191004
  Serious: Yes (Hospitalization)
  Sender: FDA-Public Use
  Company Number: FR-ANIPHARMA-2019-FR-000151

PATIENT
  Age: 86 Year
  Sex: Female

DRUGS (8)
  1. ATACAND [Suspect]
     Active Substance: CANDESARTAN CILEXETIL
     Indication: PRODUCT USED FOR UNKNOWN INDICATION
     Dosage: 16 MG DAILY
     Route: 048
  2. GAVISCON /OLD FORM [Concomitant]
     Dosage: UNK
     Route: 065
  3. LASILIX [Suspect]
     Active Substance: FUROSEMIDE
     Dosage: 40 MG DAILY / 60 MG DAILY / 40 MG DAILY
     Route: 048
  4. ALDACTONE [Suspect]
     Active Substance: SPIRONOLACTONE
     Dosage: 25 MG DAILY
     Route: 048
     Dates: end: 20131125
  5. LEVOTHYROX [Concomitant]
     Active Substance: LEVOTHYROXINE
     Dosage: UNK
     Route: 065
  6. PREVISCAN [Concomitant]
     Dosage: UNK
     Route: 065
  7. EUPANTOL [Suspect]
     Active Substance: PANTOPRAZOLE SODIUM
     Dosage: 40 MG DAILY
     Route: 048
     Dates: end: 20131125
  8. STILNOX [Concomitant]
     Active Substance: ZOLPIDEM TARTRATE
     Dosage: UNK
     Route: 048

REACTIONS (5)
  - Acute kidney injury [Recovering/Resolving]
  - Asthmatic crisis [Unknown]
  - Cardiac failure [Unknown]
  - Bronchitis [Unknown]
  - Hyponatraemia [Recovered/Resolved]

NARRATIVE: CASE EVENT DATE: 20131115
